FAERS Safety Report 5630933-X (Version None)
Quarter: 2008Q1

REPORT INFORMATION
  Report Type: 
  Country: None (occurrence: None)
  Receive Date: 20080219
  Receipt Date: 20080208
  Transmission Date: 20080703
  Serious: Yes (Death)
  Sender: FDA-Public Use
  Company Number: US-ROCHE-545168

PATIENT
  Age: 73 Year
  Sex: Female

DRUGS (30)
  1. MYCOPHENOLATE MOFETIL [Suspect]
     Route: 048
     Dates: start: 20060501
  2. MYCOPHENOLATE MOFETIL [Suspect]
     Route: 048
     Dates: start: 20060724, end: 20060805
  3. MYCOPHENOLATE MOFETIL [Suspect]
     Route: 048
     Dates: start: 20060816, end: 20060903
  4. SIROLIMUS [Suspect]
     Route: 048
     Dates: start: 20060601, end: 20060601
  5. SIROLIMUS [Suspect]
     Route: 048
     Dates: start: 20060602
  6. SIROLIMUS [Suspect]
     Route: 048
     Dates: start: 20060811, end: 20060903
  7. PREDNISONE TAB [Suspect]
     Dosage: DOSAGE REPORTED AS PILL
     Route: 048
     Dates: start: 20060507
  8. PREDNISONE TAB [Suspect]
     Route: 048
     Dates: start: 20060629
  9. TACROLIMUS [Suspect]
     Dosage: DOSAGE FORM PILL
     Route: 048
  10. BACTRIM [Concomitant]
     Dosage: ONE TABLET PER MONTH.
     Dates: start: 20060511, end: 20060903
  11. PEPCID [Concomitant]
     Dates: start: 20060503, end: 20060903
  12. NISTATIN [Concomitant]
     Dosage: TDD REPORTED AS 500000.
     Dates: start: 20060502
  13. MULTIVITAMIN NOS [Concomitant]
     Dates: start: 20060729, end: 20060903
  14. PROCRIT [Concomitant]
     Dates: start: 20060712, end: 20060712
  15. 1 CONCOMITANT DRUG [Concomitant]
     Dosage: DRUG NAME AND DAILY DOSE ILLEGIBLE.
     Dates: start: 20060502
  16. ACID FOLIC [Concomitant]
     Dates: start: 20060823, end: 20060903
  17. FERROUS SULFATE TAB [Concomitant]
     Dates: start: 20060823, end: 20060903
  18. 1 CONCOMITANT DRUG [Concomitant]
     Dates: start: 20060812, end: 20060903
  19. ZELNORM [Concomitant]
     Dates: start: 20060816, end: 20060903
  20. PREVACID [Concomitant]
  21. FOSAMAX [Concomitant]
  22. SINEMET [Concomitant]
  23. DETROL [Concomitant]
  24. VANCOMYCIN [Concomitant]
  25. SYNTHROID [Concomitant]
  26. VALCYTE [Concomitant]
  27. ATARAX [Concomitant]
  28. URSODIOL [Concomitant]
  29. ULTRAM [Concomitant]
  30. LEVAQUIN [Concomitant]

REACTIONS (1)
  - DEATH [None]
